FAERS Safety Report 12971678 (Version 1)
Quarter: 2016Q4

REPORT INFORMATION
  Report Type: Report from Study
  Country: US (occurrence: US)
  Receive Date: 20161123
  Receipt Date: 20161123
  Transmission Date: 20170207
  Serious: Yes (Hospitalization)
  Sender: FDA-Public Use
  Company Number: US-BIOGEN-2014BI083539

PATIENT
  Age: 63 Year
  Sex: Female

DRUGS (1)
  1. TECFIDERA [Suspect]
     Active Substance: DIMETHYL FUMARATE
     Indication: MULTIPLE SCLEROSIS
     Route: 065
     Dates: start: 20140415, end: 20140616

REACTIONS (8)
  - Gastrointestinal mucosal disorder [Recovered/Resolved]
  - Gastric disorder [Recovered/Resolved]
  - Gastrointestinal haemorrhage [Recovered/Resolved]
  - Drug intolerance [Not Recovered/Not Resolved]
  - Blood pressure decreased [Recovered/Resolved]
  - Vomiting [Recovered/Resolved]
  - Haematochezia [Recovered/Resolved]
  - Syncope [Recovered/Resolved]

NARRATIVE: CASE EVENT DATE: 201406
